FAERS Safety Report 24060886 (Version 1)
Quarter: 2024Q3

REPORT INFORMATION
  Report Type: Spontaneous
  Country: US (occurrence: None)
  Receive Date: 20240705
  Receipt Date: 20240705
  Transmission Date: 20241017
  Serious: Yes (Hospitalization)
  Sender: Public
  Company Number: None

PATIENT
  Age: 63 Year
  Sex: Male

DRUGS (6)
  1. MAVYRET [Suspect]
     Active Substance: GLECAPREVIR\PIBRENTASVIR
     Indication: Hepatitis C
     Dosage: FREQUENCY : DAILY;?
  2. GLIMEPIRIDE [Suspect]
     Active Substance: GLIMEPIRIDE
  3. METFORMIN HYDROCHLORIDE [Suspect]
     Active Substance: METFORMIN HYDROCHLORIDE
  4. JARDIANCE [Suspect]
     Active Substance: EMPAGLIFLOZIN
  5. TRESIBA [Suspect]
     Active Substance: INSULIN DEGLUDEC
  6. PIOGLITAZONE [Suspect]
     Active Substance: PIOGLITAZONE

REACTIONS (3)
  - Blood glucose decreased [None]
  - Drug interaction [None]
  - Therapy interrupted [None]

NARRATIVE: CASE EVENT DATE: 20240703
